FAERS Safety Report 7878305-1 (Version None)
Quarter: 2011Q4

REPORT INFORMATION
  Report Type: 
  Country: None (occurrence: None)
  Receive Date: 20111028
  Receipt Date: 20111018
  Transmission Date: 20120403
  Serious: Yes (Hospitalization)
  Sender: FDA-Public Use
  Company Number: 11-657

PATIENT
  Age: 37 Year
  Sex: Male

DRUGS (1)
  1. IBUPROFEN-CODEINE [Suspect]
     Dosage: 24DF/QD, ORAL, SEVERAL YEARS
     Route: 048

REACTIONS (6)
  - HYPOCALCAEMIA [None]
  - MUSCULAR WEAKNESS [None]
  - RENAL TUBULAR ACIDOSIS [None]
  - HYPOREFLEXIA [None]
  - MYALGIA [None]
  - DRUG WITHDRAWAL SYNDROME [None]
